FAERS Safety Report 7733089-2 (Version None)
Quarter: 2011Q3

REPORT INFORMATION
  Report Type: 
  Country: None (occurrence: None)
  Receive Date: 20110907
  Receipt Date: 20110826
  Transmission Date: 20111222
  Serious: Yes (Hospitalization)
  Sender: FDA-Public Use
  Company Number: JP-MERCK-1107USA03875

PATIENT
  Age: 43 Year
  Sex: Female

DRUGS (5)
  1. LORCAM [Concomitant]
     Route: 048
     Dates: start: 20110601
  2. FOSAMAX [Suspect]
     Indication: OSTEOPOROSIS
     Route: 048
     Dates: start: 20110625, end: 20110717
  3. PEPCID [Concomitant]
     Indication: PANCREATITIS CHRONIC
     Route: 048
     Dates: start: 20101101
  4. ALFAROL [Suspect]
     Indication: OSTEOPOROSIS
     Route: 048
     Dates: start: 20110625, end: 20110710
  5. FOIPAN [Concomitant]
     Indication: PANCREATITIS CHRONIC
     Route: 048
     Dates: start: 20101101

REACTIONS (1)
  - LIVER DISORDER [None]
